FAERS Safety Report 18121504 (Version 1)
Quarter: 2020Q3

REPORT INFORMATION
  Report Type: Spontaneous
  Country: US (occurrence: US)
  Receive Date: 20200806
  Receipt Date: 20200806
  Transmission Date: 20201103
  Serious: No
  Sender: FDA-Public Use
  Company Number: US-ASSERTIO THERAPEUTICS, INC.-US-2019DEP000678

PATIENT
  Sex: Female

DRUGS (1)
  1. CAMBIA [Suspect]
     Active Substance: DICLOFENAC POTASSIUM
     Indication: PRODUCT USED FOR UNKNOWN INDICATION
     Dosage: MIX CONTENTS OF ONE PACKET WITH 1?2 OUNCES OF WATER. DRINK IMMEDIATELY AS A SINGLE DOSE AS DIRECTED
     Route: 048
     Dates: end: 2019

REACTIONS (1)
  - Drug ineffective [Unknown]
